FAERS Safety Report 21633951 (Version 1)
Quarter: 2022Q4

REPORT INFORMATION
  Report Type: Report from Study
  Country: US (occurrence: US)
  Receive Date: 20221123
  Receipt Date: 20221123
  Transmission Date: 20230113
  Serious: Yes (Hospitalization)
  Sender: FDA-Public Use
  Company Number: US-ABBVIE-4210918

PATIENT
  Sex: Male

DRUGS (3)
  1. VENCLEXTA [Suspect]
     Active Substance: VENETOCLAX
     Indication: Leukocytosis
     Dosage: FORM STRENGTH: 100 MG?TAKE ONE TABLET BY MOUTH ON DAY ONE, TWO TABLETS ON DAY TWO, THEN FOUR TABL...
     Route: 048
  2. VENCLEXTA [Suspect]
     Active Substance: VENETOCLAX
     Indication: Leukocytosis
     Dosage: DAY 2?FORM STRENGTH: 100 MG?TAKE ONE TABLET BY MOUTH ON DAY ONE, TWO TABLETS ON DAY TWO, THEN FOU...
     Route: 048
  3. VENCLEXTA [Suspect]
     Active Substance: VENETOCLAX
     Indication: Leukocytosis
     Dosage: FORM STRENGTH: 100 MG?TAKE ONE TABLET BY MOUTH ON DAY ONE, TWO TABLETS ON DAY TWO, THEN FOUR TABL...
     Route: 048

REACTIONS (2)
  - Infection [Unknown]
  - Off label use [Unknown]
